FAERS Safety Report 8123003-2 (Version None)
Quarter: 2012Q1

REPORT INFORMATION
  Report Type: 
  Country: None (occurrence: None)
  Receive Date: 20120208
  Receipt Date: 20120131
  Transmission Date: 20120608
  Serious: Yes (Hospitalization)
  Sender: FDA-Public Use
  Company Number: US-PFIZER INC-2010138895

PATIENT
  Sex: Male
  Weight: 155 kg

DRUGS (16)
  1. CALCIUM FOLINATE [Concomitant]
     Indication: COLON CANCER METASTATIC
     Dosage: 800 MG, EVERY 2 WEEKS
     Route: 042
     Dates: start: 20100817, end: 20101026
  2. CARVEDILOL [Concomitant]
     Indication: CARDIAC FAILURE CONGESTIVE
     Dosage: UNK
     Route: 048
     Dates: start: 20000101
  3. COMBIGAN [Concomitant]
     Indication: GLAUCOMA
     Dosage: UNK
     Route: 048
     Dates: start: 20050101
  4. OXYCODONE [Concomitant]
     Indication: PAIN
     Dosage: UNK
     Route: 048
     Dates: start: 20100601
  5. IRINOTECAN HCL [Suspect]
     Indication: COLON CANCER METASTATIC
     Dosage: 360 MG, EVERY 2 WEEKS
     Route: 042
     Dates: start: 20100817, end: 20101026
  6. HUMULIN N [Concomitant]
     Indication: DIABETES MELLITUS
     Dosage: UNK
     Route: 048
     Dates: start: 19850101
  7. ACTOS [Concomitant]
     Indication: DIABETES MELLITUS
     Dosage: UNK
     Route: 048
     Dates: start: 20000101
  8. SIMVASTATIN [Concomitant]
     Indication: HYPERLIPIDAEMIA
     Dosage: UNK
     Route: 048
  9. DIGOXIN [Concomitant]
     Indication: CARDIAC FAILURE CONGESTIVE
     Dosage: UNK
     Route: 048
     Dates: start: 20000101
  10. LUMIGAN [Concomitant]
     Indication: GLAUCOMA
     Dosage: UNK
     Route: 048
     Dates: start: 20050101
  11. FLUOROURACIL [Suspect]
     Indication: COLON CANCER METASTATIC
     Dosage: 800 MG, EVERY 2 WEEKS
     Route: 040
     Dates: start: 20100817, end: 20101026
  12. FLUOROURACIL [Suspect]
     Dosage: 4800 MG, EVERY 2 WEEKS, 46-48 INFUSION
     Route: 041
     Dates: start: 20100817, end: 20101028
  13. LASIX [Concomitant]
     Indication: CARDIAC FAILURE CONGESTIVE
     Dosage: UNK
     Route: 048
     Dates: start: 19900101
  14. LYRICA [Concomitant]
     Indication: DIABETIC NEUROPATHY
     Dosage: UNK
     Route: 048
     Dates: start: 20000101
  15. AXITINIB [Suspect]
     Indication: COLON CANCER METASTATIC
     Dosage: 10 MG, 2X/DAY
     Route: 048
     Dates: start: 20100803, end: 20101030
  16. COMPAZINE [Concomitant]
     Indication: NAUSEA
     Dosage: UNK
     Route: 048
     Dates: start: 20100601

REACTIONS (1)
  - SMALL INTESTINAL OBSTRUCTION [None]
